FAERS Safety Report 7944573-0 (Version None)
Quarter: 2011Q4

REPORT INFORMATION
  Report Type: 
  Country: None (occurrence: None)
  Receive Date: 20111122
  Receipt Date: 20110823
  Transmission Date: 20120403
  Serious: Yes (Other)
  Sender: FDA-Public Use
  Company Number: PHHY2010US89814

PATIENT
  Age: 36 Year
  Sex: Female

DRUGS (5)
  1. GILENYA [Suspect]
     Indication: RELAPSING-REMITTING MULTIPLE SCLEROSIS
     Dosage: 0.5 MG, QD, ORAL
     Route: 048
     Dates: start: 20101221, end: 20110601
  2. ALPRAZOLAM [Concomitant]
  3. CYCLOBENZAPRINE [Concomitant]
  4. ERGOCALCIFEROL [Concomitant]
  5. BACLOFEN [Concomitant]

REACTIONS (4)
  - CD4 LYMPHOCYTES DECREASED [None]
  - NAUSEA [None]
  - DIARRHOEA [None]
  - LEUKOPENIA [None]
